FAERS Safety Report 9634515 (Version 1)
Quarter: 2013Q4

REPORT INFORMATION
  Report Type: Spontaneous
  Country: US (occurrence: US)
  Receive Date: 20131021
  Receipt Date: 20131021
  Transmission Date: 20140711
  Serious: Yes (Other)
  Sender: FDA-Public Use
  Company Number: US-BAYER-2013-124763

PATIENT
  Age: 76 Year
  Sex: Female

DRUGS (4)
  1. AVELOX I.V. [Suspect]
     Indication: ANTI-INFECTIVE THERAPY
     Dosage: UNK
     Dates: start: 201301
  2. ALBUTEROL NEBULIZER [Concomitant]
  3. PROMETHAZINE [Concomitant]
     Route: 041
  4. HYCODAN [HYDROCODONE BITARTRATE] [Concomitant]

REACTIONS (2)
  - Anosmia [None]
  - Ageusia [None]
